FAERS Safety Report 8212630-X (Version None)
Quarter: 2012Q1

REPORT INFORMATION
  Report Type: 
  Country: None (occurrence: None)
  Receive Date: 20120228
  Receipt Date: 20111115
  Transmission Date: 20120608
  Serious: Yes (Hospitalization, Other)
  Sender: FDA-Public Use
  Company Number: RB-34344-2011

PATIENT
  Age: 51 Year
  Sex: Female

DRUGS (1)
  1. SUBOXONE [Suspect]
     Indication: PAIN MANAGEMENT

REACTIONS (2)
  - LOWER LIMB FRACTURE [None]
  - OFF LABEL USE [None]
